FAERS Safety Report 15955981 (Version 2)
Quarter: 2019Q3

REPORT INFORMATION
  Report Type: Spontaneous
  Country: US (occurrence: US)
  Receive Date: 20190213
  Receipt Date: 20190819
  Transmission Date: 20191004
  Serious: No
  Sender: FDA-Public Use
  Company Number: US-MYLANLABS-2019M1000627

PATIENT
  Sex: Male

DRUGS (1)
  1. OCTREOTIDE ACETATE INJECTION [Suspect]
     Active Substance: OCTREOTIDE ACETATE
     Indication: CARCINOID TUMOUR
     Dosage: UNK
     Route: 058

REACTIONS (6)
  - Injection site reaction [Unknown]
  - Spinal pain [Unknown]
  - Malaise [Unknown]
  - Abdominal pain upper [Unknown]
  - Vomiting [Unknown]
  - Musculoskeletal chest pain [Unknown]
